FAERS Safety Report 9179089 (Version 1)
Quarter: 2013Q1

REPORT INFORMATION
  Report Type: Report from Study
  Country: JP (occurrence: JP)
  Receive Date: 20130321
  Receipt Date: 20130321
  Transmission Date: 20140127
  Serious: Yes (Hospitalization)
  Sender: FDA-Public Use
  Company Number: JP-009507513-2012SP031410

PATIENT
  Age: 60 Year
  Sex: Female
  Weight: 50 kg

DRUGS (9)
  1. PEGINTRON [Suspect]
     Indication: CHRONIC HEPATITIS C
     Dosage: 1.5 MICROGRAM PER KILOGRAM, QW,DAILY DOSE UNKNOWN
     Route: 058
     Dates: start: 20120524, end: 20120524
  2. REBETOL [Suspect]
     Indication: CHRONIC HEPATITIS C
     Dosage: 600 MG, QD
     Route: 048
     Dates: start: 20120524, end: 20120528
  3. TELAVIC [Suspect]
     Indication: CHRONIC HEPATITIS C
     Dosage: 2250 MG, QD
     Route: 048
     Dates: start: 20120524, end: 20120528
  4. LOXONIN [Concomitant]
     Indication: HEADACHE
     Dosage: 60 MG/DAY, PRN
     Route: 048
  5. ACINON [Concomitant]
     Indication: PROPHYLAXIS
     Dosage: 300 MG, QD
     Route: 048
     Dates: end: 20120607
  6. PROMAC (POLAPREZINC) [Concomitant]
     Indication: PROPHYLAXIS
     Dosage: 1 G, QD
     Route: 048
     Dates: end: 20120530
  7. HIRUDOID [Concomitant]
     Indication: XERODERMA
     Dosage: Q.S/DAY, AS NEEDED,DAILY DOSE UNKNOWN
     Route: 061
  8. NIZORAL [Concomitant]
     Indication: TINEA PEDIS
     Dosage: Q.S/DAY, DAILY DOSE UNKNOWN
     Route: 061
  9. DEXTROSE (+) ELECTROLYTES (UNSPECIFIED) (+) SODIUM LACTATE [Concomitant]
     Dosage: 1000 ML, QD
     Route: 042
     Dates: start: 20120528, end: 20120603

REACTIONS (3)
  - Hyperuricaemia [Recovered/Resolved]
  - Nausea [Recovered/Resolved]
  - Renal impairment [Recovered/Resolved]
